FAERS Safety Report 8222032-8 (Version None)
Quarter: 2012Q1

REPORT INFORMATION
  Report Type: 
  Country: None (occurrence: None)
  Receive Date: 20120320
  Receipt Date: 20120305
  Transmission Date: 20120608
  Serious: Yes (Death, Hospitalization)
  Sender: FDA-Public Use
  Company Number: DE-ELI_LILLY_AND_COMPANY-DE201103004513

PATIENT
  Sex: Male
  Weight: 85 kg

DRUGS (23)
  1. TORSEMIDE [Concomitant]
     Indication: HYPERTENSION
     Dosage: UNK
     Dates: start: 20110226, end: 20110313
  2. FRAXIPARIN [Concomitant]
     Indication: PROPHYLAXIS
     Dosage: UNK
     Dates: start: 20110302
  3. FOLIC ACID [Concomitant]
     Dosage: 0.4 MG, UNK
     Dates: start: 20110107, end: 20110118
  4. CONCOR 5 PLUS [Concomitant]
     Indication: HYPERTENSION
     Dosage: UNK
     Dates: end: 20110315
  5. RED BLOOD CELLS, CONCENTRATED [Concomitant]
     Indication: ANAEMIA
     Dosage: UNK
     Dates: start: 20110309, end: 20110309
  6. AMLODIPINE BESYLATE [Concomitant]
     Indication: HYPERTENSION
     Dosage: UNK
     Dates: end: 20110307
  7. NOVALGIN                           /00169801/ [Concomitant]
     Indication: OSTEOLYSIS
     Dosage: UNK
     Dates: start: 20110107, end: 20110309
  8. CITALOPRAM HYDROBROMIDE [Concomitant]
     Indication: ANXIETY
     Dosage: UNK
     Dates: start: 20110222, end: 20110315
  9. ARIXTRA [Concomitant]
     Indication: THROMBOSIS
     Dosage: UNK
     Dates: start: 20110305, end: 20110309
  10. PEMETREXED [Suspect]
     Indication: NON-SMALL CELL LUNG CANCER STAGE IV
     Dosage: 765 MG, OTHER
     Dates: start: 20110114
  11. CALCIUM SANDOZ [Concomitant]
     Indication: HYPOCALCAEMIA
     Dosage: UNK
     Dates: start: 20110304
  12. ALDACTONE [Concomitant]
     Indication: OEDEMA
     Dosage: UNK
     Dates: start: 20110226
  13. SIMVASTATIN [Concomitant]
     Indication: HYPERCHOLESTEROLAEMIA
     Dosage: UNK
     Dates: end: 20110313
  14. SODIUM CHLORIDE [Concomitant]
     Dosage: UNK
     Dates: start: 20110314
  15. NECITUMUMAB (11F8) (LY3012211) [Suspect]
     Indication: NON-SMALL CELL LUNG CANCER STAGE IV
     Dosage: 800 MG, UNK
     Dates: start: 20110114
  16. CISPLATIN [Suspect]
     Indication: NON-SMALL CELL LUNG CANCER STAGE IV
     Dosage: 114 MG, OTHER
     Dates: start: 20110114
  17. VITAMIN B-12 [Concomitant]
     Dosage: UNK
     Dates: start: 20110107
  18. PANTOZAL [Concomitant]
     Dosage: UNK
     Dates: start: 20110315
  19. XIMOVAN [Concomitant]
     Indication: INSOMNIA
  20. CALCICHEW-D3 FORTE [Concomitant]
     Indication: HYPOCALCAEMIA
     Dosage: UNK
     Dates: start: 20110226
  21. ZOMETA [Concomitant]
     Indication: HYPERCALCAEMIA
     Dosage: UNK
     Dates: start: 20110107
  22. PANTOZAL [Concomitant]
     Indication: PROPHYLAXIS
     Dosage: UNK
     Dates: start: 20110219, end: 20110315
  23. POTASSIUM CHLORIDE [Concomitant]
     Indication: HYPOKALAEMIA
     Dosage: UNK
     Route: 042
     Dates: start: 20110310

REACTIONS (2)
  - MULTI-ORGAN FAILURE [None]
  - NEUTROPENIA [None]
